FAERS Safety Report 6136020-9 (Version None)
Quarter: 2009Q1

REPORT INFORMATION
  Report Type: 
  Country: None (occurrence: None)
  Receive Date: 20090325
  Receipt Date: 20090319
  Transmission Date: 20090719
  Serious: Yes (Other)
  Sender: FDA-Public Use
  Company Number: A0774457A

PATIENT
  Age: 48 Year
  Sex: Female

DRUGS (1)
  1. METHYLCELLULOSE SUSPENSION REGULAR (METHYLCELLULOSE) [Suspect]
     Indication: DRUG USE FOR UNKNOWN INDICATION
     Dosage: ORAL
     Route: 048

REACTIONS (3)
  - CHOKING [None]
  - GASTROOESOPHAGEAL REFLUX DISEASE [None]
  - OBSTRUCTIVE AIRWAYS DISORDER [None]
